FAERS Safety Report 9122745 (Version 1)
Quarter: 2013Q1

REPORT INFORMATION
  Report Type: Spontaneous
  Country: US (occurrence: US)
  Receive Date: 20130115
  Receipt Date: 20130115
  Transmission Date: 20140127
  Serious: No
  Sender: FDA-Public Use
  Company Number: US-PFIZER INC-2013012717

PATIENT
  Age: 78 Year
  Sex: Female

DRUGS (1)
  1. SUTENT [Suspect]
     Indication: METASTATIC RENAL CELL CARCINOMA
     Dosage: 50 MG DAILY ON A SCHEDULE OF 4 WEEKS ON TREATMENT FOLLOWED BY 2 WEEKS OFF (SCHEDULE 4/2
     Dates: start: 2012

REACTIONS (2)
  - Mucosal inflammation [Unknown]
  - Vulvovaginal pain [Unknown]
